FAERS Safety Report 16756572 (Version 2)
Quarter: 2020Q3

REPORT INFORMATION
  Report Type: Spontaneous
  Country: US (occurrence: US)
  Receive Date: 20190829
  Receipt Date: 20200830
  Transmission Date: 20201102
  Serious: No
  Sender: FDA-Public Use
  Company Number: US-ENDO PHARMACEUTICALS INC-2019-106003

PATIENT
  Sex: Female

DRUGS (2)
  1. PREDNISONE. [Suspect]
     Active Substance: PREDNISONE
     Dosage: 5 MG, BID
     Route: 048
  2. PREDNISONE. [Suspect]
     Active Substance: PREDNISONE
     Indication: PRODUCT USED FOR UNKNOWN INDICATION
     Dosage: 5 MG, DAILY (SKIPPED TAKING HER EVENING DOSE)
     Route: 048

REACTIONS (4)
  - Ill-defined disorder [Unknown]
  - Product dose omission issue [Unknown]
  - Hypokinesia [Unknown]
  - Arthralgia [Unknown]
